FAERS Safety Report 6218772-2 (Version None)
Quarter: 2009Q2

REPORT INFORMATION
  Report Type: 
  Country: None (occurrence: None)
  Receive Date: 20090608
  Receipt Date: 20090525
  Transmission Date: 20091009
  Serious: Yes (Death)
  Sender: FDA-Public Use
  Company Number: SE-ELI_LILLY_AND_COMPANY-EWC011129039

PATIENT
  Age: 41 Year
  Sex: Male

DRUGS (2)
  1. ZYPREXA [Suspect]
     Indication: SCHIZOPHRENIA
     Dosage: 10 MG, DAILY (1/D)
     Route: 048
     Dates: start: 20001101, end: 20010701
  2. ZYPREXA [Suspect]
     Dosage: 1050 MG, OTHER
     Route: 048
     Dates: start: 20010701, end: 20010701

REACTIONS (8)
  - COMPLETED SUICIDE [None]
  - CONDITION AGGRAVATED [None]
  - DELUSION [None]
  - DEPRESSION [None]
  - DRUG TOLERANCE [None]
  - DRUG TOXICITY [None]
  - HALLUCINATION [None]
  - INTENTIONAL OVERDOSE [None]
